FAERS Safety Report 12079977 (Version 3)
Quarter: 2016Q1

REPORT INFORMATION
  Report Type: Report from Study
  Country: US (occurrence: US)
  Receive Date: 20160216
  Receipt Date: 20160311
  Transmission Date: 20160526
  Serious: Yes (Hospitalization)
  Sender: FDA-Public Use
  Company Number: US-ACTELION-A-NJ2015-125513

PATIENT
  Age: 75 Year
  Sex: Female

DRUGS (3)
  1. TREPROSTINIL DIOLAMIN [Suspect]
     Active Substance: TREPROSTINIL DIOLAMINE
     Indication: PRODUCT USED FOR UNKNOWN INDICATION
     Route: 065
  2. TRACLEER [Suspect]
     Active Substance: BOSENTAN
     Indication: PULMONARY ARTERIAL HYPERTENSION
     Dosage: UNK
     Route: 048
  3. OXYGEN. [Concomitant]
     Active Substance: OXYGEN

REACTIONS (17)
  - Renal failure [Unknown]
  - Confusional state [Not Recovered/Not Resolved]
  - Nausea [Not Recovered/Not Resolved]
  - Gastrointestinal disorder [Unknown]
  - Dizziness [Not Recovered/Not Resolved]
  - Headache [Not Recovered/Not Resolved]
  - Cardiac failure congestive [Unknown]
  - Constipation [Unknown]
  - Dyspnoea [Unknown]
  - Blood pressure increased [Unknown]
  - Liver disorder [Unknown]
  - Anaemia [Unknown]
  - Blood magnesium increased [Unknown]
  - Epistaxis [Unknown]
  - Loss of consciousness [Unknown]
  - Fatigue [Unknown]
  - Fluid overload [Unknown]
